FAERS Safety Report 16491729 (Version 1)
Quarter: 2019Q3

REPORT INFORMATION
  Report Type: Spontaneous
  Country: US (occurrence: US)
  Receive Date: 20190627
  Receipt Date: 20190627
  Transmission Date: 20191004
  Serious: Yes (Other)
  Sender: FDA-Public Use
  Company Number: None

PATIENT
  Age: 25 Year
  Sex: Female
  Weight: 72.57 kg

DRUGS (1)
  1. MIRENA [Suspect]
     Active Substance: LEVONORGESTREL

REACTIONS (8)
  - Bowel movement irregularity [None]
  - Nausea [None]
  - Muscle spasms [None]
  - Embedded device [None]
  - Vomiting [None]
  - Pain [None]
  - Urinary tract infection [None]
  - Quality of life decreased [None]

NARRATIVE: CASE EVENT DATE: 20190614
